FAERS Safety Report 8741911 (Version 3)
Quarter: 2013Q4

REPORT INFORMATION
  Report Type: Spontaneous
  Country: US (occurrence: US)
  Receive Date: 20120824
  Receipt Date: 20131101
  Transmission Date: 20140711
  Serious: No
  Sender: FDA-Public Use
  Company Number: US-009507513-1208USA005872

PATIENT
  Age: 40 Year
  Sex: Female

DRUGS (2)
  1. SAPHRIS [Suspect]
     Indication: BIPOLAR DISORDER
     Dosage: RAPID DISSOLVE 5
     Route: 060
     Dates: start: 201202, end: 20120808
  2. LAMICTAL [Concomitant]
     Dosage: 25 MG, QD
     Route: 048

REACTIONS (1)
  - Hypoaesthesia oral [Not Recovered/Not Resolved]
